FAERS Safety Report 8764635 (Version 3)
Quarter: 2012Q4

REPORT INFORMATION
  Report Type: 
  Country: US (occurrence: US)
  Receive Date: 20120831
  Receipt Date: 20121019
  Transmission Date: 20130627
  Serious: Yes (Other)
  Sender: FDA-Public Use
  Company Number: US-ASTRAZENECA-2012SE64940

PATIENT
  Age: 55 Year
  Sex: Male

DRUGS (2)
  1. NEXIUM [Suspect]
     Indication: GASTROOESOPHAGEAL REFLUX DISEASE
     Route: 048
     Dates: end: 201208
  2. NEXIUM [Suspect]
     Indication: GASTROOESOPHAGEAL REFLUX DISEASE
     Route: 048
     Dates: start: 201209

REACTIONS (11)
  - Benign gastric neoplasm [Unknown]
  - Feeling abnormal [Unknown]
  - Mass [Unknown]
  - Decreased appetite [Unknown]
  - Weight decreased [Unknown]
  - Gastrooesophageal reflux disease [Recovered/Resolved]
  - Pharyngeal disorder [Recovered/Resolved]
  - Abdominal discomfort [Recovered/Resolved]
  - Malaise [Unknown]
  - Nausea [Recovered/Resolved]
  - Drug dose omission [Unknown]
